FAERS Safety Report 6687614-3 (Version None)
Quarter: 2010Q2

REPORT INFORMATION
  Report Type: 
  Country: None (occurrence: None)
  Receive Date: 20100414
  Receipt Date: 20100331
  Transmission Date: 20101027
  Serious: Yes (Hospitalization, Other)
  Sender: FDA-Public Use
  Company Number: 220001M10DEU

PATIENT
  Age: 70 Year
  Sex: Male

DRUGS (2)
  1. SAIZEN [Suspect]
     Indication: BLOOD GROWTH HORMONE DECREASED
     Dosage: 3 DF, 1 IN 1 B, SUBCUTANEOUS
     Route: 058
     Dates: start: 20070101, end: 20091001
  2. SAIZEN [Suspect]
     Indication: HYPOPITUITARISM
     Dosage: 3 DF, 1 IN 1 B, SUBCUTANEOUS
     Route: 058
     Dates: start: 20070101, end: 20091001

REACTIONS (1)
  - RECTAL CANCER [None]
